FAERS Safety Report 21856774 (Version 3)
Quarter: 2023Q1

REPORT INFORMATION
  Report Type: Spontaneous
  Country: US (occurrence: US)
  Receive Date: 20230113
  Receipt Date: 20230202
  Transmission Date: 20230418
  Serious: Yes (Other)
  Sender: FDA-Public Use
  Company Number: US-SUN PHARMACEUTICAL INDUSTRIES LTD-2022R1-372559

PATIENT
  Age: 36 Year
  Sex: Male
  Weight: 99.79 kg

DRUGS (4)
  1. OXCARBAZEPINE [Suspect]
     Active Substance: OXCARBAZEPINE
     Indication: Trigeminal neuralgia
     Dosage: 300 MILLIGRAM, BID
     Route: 048
     Dates: start: 20190905
  2. GABAPENTIN [Concomitant]
     Active Substance: GABAPENTIN
     Indication: Trigeminal neuritis
     Dosage: 1200 MILLIGRAM, TID
     Route: 048
  3. BACLOFEN [Concomitant]
     Active Substance: BACLOFEN
     Indication: Trigeminal neuritis
     Dosage: 10 MILLIGRAM, TID
     Route: 048
  4. NORTRIPTYLINE [Concomitant]
     Active Substance: NORTRIPTYLINE
     Indication: Trigeminal neuritis
     Dosage: 25 MILLIGRAM, BID
     Route: 048

REACTIONS (3)
  - Angioedema [Recovered/Resolved]
  - Necrosis [Recovered/Resolved]
  - Condition aggravated [Unknown]

NARRATIVE: CASE EVENT DATE: 20190906
